FAERS Safety Report 4755386-5 (Version None)
Quarter: 2005Q3

REPORT INFORMATION
  Report Type: 
  Country: None (occurrence: None)
  Receive Date: 20050826
  Receipt Date: 20050211
  Transmission Date: 20060218
  Serious: Yes (Death)
  Sender: FDA-Public Use
  Company Number: USA-2002-0003470

PATIENT
  Age: 18 Year
  Sex: Male
  Weight: 115.6 kg

DRUGS (9)
  1. OXYCONTIN [Suspect]
  2. ALCOHOL (ETHANOL) [Suspect]
     Dosage: ORAL
     Route: 048
  3. XANAX [Suspect]
  4. NICOTINE [Suspect]
  5. EPHEDRINE (EPHEDRINE) [Suspect]
  6. PSEUDOEPHEDRINE HCL [Suspect]
  7. PROCHLORPERAZONE (PROCHLORPERAZINE) [Suspect]
  8. CAFFEINE (CAFFEINE) [Suspect]
  9. ZYPREXA [Suspect]

REACTIONS (3)
  - ACCIDENTAL OVERDOSE [None]
  - DRUG ABUSER [None]
  - MULTIPLE DRUG OVERDOSE [None]
